FAERS Safety Report 9955114 (Version 2)
Quarter: 2014Q1

REPORT INFORMATION
  Report Type: Spontaneous
  Country: US (occurrence: US)
  Receive Date: 20140304
  Receipt Date: 20140304
  Transmission Date: 20141002
  Serious: Yes (Hospitalization, Other)
  Sender: FDA-Public Use
  Company Number: US-ASTRAZENECA-2013SE86388

PATIENT
  Sex: Female

DRUGS (2)
  1. BRILINTA [Suspect]
     Route: 048
  2. ASPIRIN [Concomitant]
     Dosage: STANDARD DOSE

REACTIONS (4)
  - Thrombosis in device [Unknown]
  - Angiopathy [Unknown]
  - Adverse event [Unknown]
  - Contusion [Not Recovered/Not Resolved]
